FAERS Safety Report 5487189-0 (Version None)
Quarter: 2007Q4

REPORT INFORMATION
  Report Type: 
  Country: None (occurrence: None)
  Receive Date: 20071016
  Receipt Date: 20071003
  Transmission Date: 20080405
  Serious: Yes (Hospitalization)
  Sender: FDA-Public Use
  Company Number: US-ELI_LILLY_AND_COMPANY-US200710000922

PATIENT
  Age: 49 Year
  Sex: Female

DRUGS (8)
  1. CYMBALTA [Suspect]
     Indication: NECK PAIN
     Dosage: 30 MG, 2/D
     Route: 048
  2. AMBIEN [Concomitant]
     Dosage: 10 MG, UNK
  3. REQUIP [Concomitant]
     Dosage: 0.25 MG, UNK
  4. CYCLOBENZAPRINE HCL [Concomitant]
     Dosage: 10 MG, 3/D
     Route: 048
  5. LYRICA [Concomitant]
     Dosage: 100 MG, UNK
  6. XANAX [Concomitant]
     Dosage: 1 MG, UNK
  7. HYDROCODONE BITARTRATE [Concomitant]
     Dosage: 7.5 MG, UNK
  8. PARACETAMOL [Concomitant]
     Dosage: 750 MG, UNK

REACTIONS (2)
  - GASTRIC BYPASS [None]
  - PHARMACEUTICAL PRODUCT COMPLAINT [None]
